FAERS Safety Report 4917281-8 (Version None)
Quarter: 2006Q1

REPORT INFORMATION
  Report Type: 
  Country: None (occurrence: None)
  Receive Date: 20060221
  Receipt Date: 20060207
  Transmission Date: 20060701
  Serious: Yes (Hospitalization)
  Sender: FDA-Public Use
  Company Number: FR-AVENTIS-200610491FR

PATIENT
  Age: 63 Year
  Sex: Male

DRUGS (13)
  1. KETEK [Suspect]
     Indication: BRONCHITIS
     Route: 048
     Dates: start: 20051108
  2. AUGMENTIN '125' [Suspect]
     Indication: URINARY TRACT INFECTION
     Route: 048
     Dates: start: 20051118
  3. ALLOPURINOL [Suspect]
     Route: 048
     Dates: end: 20051207
  4. FUROSEMIDE [Suspect]
     Route: 048
     Dates: end: 20051207
  5. COVERSYL [Suspect]
     Route: 048
     Dates: end: 20051207
  6. COVERSYL [Suspect]
     Route: 048
     Dates: start: 20051222
  7. MEDIATOR [Suspect]
     Route: 048
     Dates: end: 20051207
  8. SOTALOL HCL [Concomitant]
  9. DIAMICRON [Concomitant]
  10. ZOCOR [Concomitant]
  11. OGAST [Concomitant]
  12. PREVISCAN [Concomitant]
     Dates: end: 20051215
  13. PREVISCAN [Concomitant]
     Dates: start: 20051226

REACTIONS (5)
  - BRONCHITIS [None]
  - ESCHERICHIA INFECTION [None]
  - PROTEINURIA [None]
  - RENAL FAILURE ACUTE [None]
  - URINARY TRACT INFECTION [None]
